FAERS Safety Report 8354816-X (Version None)
Quarter: 2012Q2

REPORT INFORMATION
  Report Type: 
  Country: None (occurrence: None)
  Receive Date: 20120511
  Receipt Date: 20120507
  Transmission Date: 20120825
  Serious: Yes (Hospitalization)
  Sender: FDA-Public Use
  Company Number: US-BAYER-2011-091022

PATIENT
  Age: 27 Year
  Sex: Female
  Weight: 52.154 kg

DRUGS (2)
  1. MIRENA [Concomitant]
     Dosage: UNK
     Dates: start: 20081117
  2. YAZ [Suspect]
     Indication: CONTRACEPTION
     Dosage: UNK
     Dates: start: 20070201, end: 20070501

REACTIONS (7)
  - PAIN [None]
  - EMOTIONAL DISTRESS [None]
  - PSYCHOLOGICAL TRAUMA [None]
  - INJURY [None]
  - ANXIETY [None]
  - DEEP VEIN THROMBOSIS [None]
  - PULMONARY EMBOLISM [None]
